FAERS Safety Report 7922453 (Version 6)
Quarter: 2016Q3

REPORT INFORMATION
  Report Type: Spontaneous
  Country: US (occurrence: US)
  Receive Date: 20110429
  Receipt Date: 20160916
  Transmission Date: 20161109
  Serious: Yes (Other)
  Sender: FDA-Public Use
  Company Number: US-ASTRAZENECA-2011SE01070

PATIENT
  Age: 48 Year
  Sex: Female

DRUGS (2)
  1. NEXIUM [Suspect]
     Active Substance: ESOMEPRAZOLE MAGNESIUM
     Indication: GASTROOESOPHAGEAL REFLUX DISEASE
     Route: 048
  2. NEXIUM [Suspect]
     Active Substance: ESOMEPRAZOLE MAGNESIUM
     Indication: GASTROOESOPHAGEAL REFLUX DISEASE
     Dosage: 40.0MG UNKNOWN
     Route: 048

REACTIONS (16)
  - Myocardial infarction [Unknown]
  - Oesophageal pain [Unknown]
  - Oesophagitis [Unknown]
  - Vomiting [Unknown]
  - Barrett^s oesophagus [Unknown]
  - Peptic ulcer [Unknown]
  - Regurgitation [Unknown]
  - Burning sensation [Unknown]
  - Drug dose omission [Unknown]
  - Pain [Unknown]
  - Feeling abnormal [Unknown]
  - Bronchitis [Unknown]
  - Feeding disorder [Unknown]
  - Dysphagia [Unknown]
  - Gastrooesophageal reflux disease [Unknown]
  - Chest pain [Unknown]
